FAERS Safety Report 7678288-3 (Version None)
Quarter: 2011Q3

REPORT INFORMATION
  Report Type: 
  Country: None (occurrence: None)
  Receive Date: 20110811
  Receipt Date: 20110802
  Transmission Date: 20111222
  Serious: Yes (Disabling, Other)
  Sender: FDA-Public Use
  Company Number: PHHY2011JP66070

PATIENT
  Age: 67 Year
  Sex: Male

DRUGS (3)
  1. TEGRETOL [Suspect]
     Dosage: 100 MG, DAILY
     Route: 048
     Dates: start: 20071201, end: 20080201
  2. TOFRANIL [Concomitant]
     Dosage: UNK UKN, UNK
  3. SAMMOTSU [Suspect]
     Dosage: UNK UKN, UNK

REACTIONS (2)
  - INTERSTITIAL LUNG DISEASE [None]
  - RESPIRATORY DISORDER [None]
